FAERS Safety Report 18244217 (Version 1)
Quarter: 2020Q3

REPORT INFORMATION
  Report Type: Spontaneous
  Country: US (occurrence: US)
  Receive Date: 20200908
  Receipt Date: 20200908
  Transmission Date: 20201103
  Serious: No
  Sender: FDA-Public Use
  Company Number: US-PFIZER INC-2020345326

PATIENT

DRUGS (5)
  1. LAMOTRIGINE. [Suspect]
     Active Substance: LAMOTRIGINE
     Indication: PETIT MAL EPILEPSY
     Dosage: 150 MG, 2X/DAY
  2. VIMPAT [Suspect]
     Active Substance: LACOSAMIDE
     Indication: PETIT MAL EPILEPSY
     Dosage: 50 MG, 2X/DAY
  3. CLONAZEPAM. [Suspect]
     Active Substance: CLONAZEPAM
     Indication: PETIT MAL EPILEPSY
     Dosage: 1 MG, 2X/DAY
  4. GABAPENTIN. [Suspect]
     Active Substance: GABAPENTIN
     Indication: PETIT MAL EPILEPSY
     Dosage: 900 MG, 3X/DAY
  5. PHENOBARBITAL. [Suspect]
     Active Substance: PHENOBARBITAL
     Indication: PETIT MAL EPILEPSY
     Dosage: 30 MG, 2X/DAY

REACTIONS (7)
  - Abdominal pain upper [Unknown]
  - Fatigue [Unknown]
  - Vision blurred [Unknown]
  - Lymphadenopathy [Unknown]
  - Memory impairment [Unknown]
  - Peripheral swelling [Unknown]
  - Dysphagia [Unknown]
